FAERS Safety Report 20822668 (Version 7)
Quarter: 2022Q3

REPORT INFORMATION
  Report Type: Spontaneous
  Country: US (occurrence: US)
  Receive Date: 20220512
  Receipt Date: 20220929
  Transmission Date: 20221026
  Serious: Yes (Other)
  Sender: FDA-Public Use
  Company Number: US-PFIZER INC-202200397365

PATIENT
  Age: 80 Year
  Sex: Female
  Weight: 68.027 kg

DRUGS (9)
  1. TIKOSYN [Suspect]
     Active Substance: DOFETILIDE
     Indication: Atrial fibrillation
     Dosage: UNK
  2. TIKOSYN [Suspect]
     Active Substance: DOFETILIDE
     Dosage: TAKE 1 CAPSULE BY MOUTH IN THE MORNING AND 1 CAPSULE IN THE EVENING
     Route: 048
     Dates: start: 20220810
  3. TIKOSYN [Suspect]
     Active Substance: DOFETILIDE
     Dosage: TAKE 1 CAPSULE BY MOUTH IN THE MORNING AND 1 CAPSULE IN THE EVENING
     Route: 048
     Dates: start: 20220818
  4. TIKOSYN [Suspect]
     Active Substance: DOFETILIDE
     Dosage: TAKE 1 CAPSULE BY MOUTH IN THE MORNING AND 1 CAPSULE IN THE EVENING
     Route: 048
     Dates: start: 20220915
  5. ELIQUIS [Concomitant]
     Active Substance: APIXABAN
     Dosage: 5 MG, 2X/DAY (2 DAILY AM PM)
  6. CELEBREX [Concomitant]
     Active Substance: CELECOXIB
     Dosage: 100 MG, 1X/DAY (ONE DAILY)
  7. INCRUSE ELLIPTA [Concomitant]
     Active Substance: UMECLIDINIUM BROMIDE
     Dosage: 62.5 UG, 1X/DAY (ONE DAILY)
     Route: 055
  8. OMEPRAZOLE [Concomitant]
     Active Substance: OMEPRAZOLE
     Dosage: 20 MG, 1X/DAY (ONE DAILY)
  9. TRIAMCINOLONE ACETONIDE [Concomitant]
     Active Substance: TRIAMCINOLONE ACETONIDE
     Dosage: UNK, AS NEEDED

REACTIONS (3)
  - Atrial fibrillation [Recovered/Resolved]
  - Back disorder [Unknown]
  - Product prescribing error [Unknown]
